FAERS Safety Report 5364651-2 (Version None)
Quarter: 2007Q2

REPORT INFORMATION
  Report Type: 
  Country: None (occurrence: None)
  Receive Date: 20070621
  Receipt Date: 20070611
  Transmission Date: 20071010
  Serious: Yes (Hospitalization, Other)
  Sender: FDA-Public Use
  Company Number: US-JNJFOC-20070602625

PATIENT
  Age: 37 Year
  Sex: Male
  Weight: 76.66 kg

DRUGS (4)
  1. REMICADE [Suspect]
     Indication: CROHN'S DISEASE
     Route: 042
  2. 6MP [Concomitant]
  3. STEROIDS [Concomitant]
  4. HUMIRA [Concomitant]

REACTIONS (5)
  - ATRIAL THROMBOSIS [None]
  - CARDIAC OPERATION [None]
  - COLECTOMY [None]
  - CROHN'S DISEASE [None]
  - SMALL INTESTINAL PERFORATION [None]
